FAERS Safety Report 25864843 (Version 1)
Quarter: 2025Q3

REPORT INFORMATION
  Report Type: Spontaneous
  Country: US (occurrence: US)
  Receive Date: 20250930
  Receipt Date: 20250930
  Transmission Date: 20251021
  Serious: Yes (Other)
  Sender: NOVO NORDISK
  Company Number: US-NOVOPROD-786719

PATIENT
  Age: 79 Year
  Sex: Male

DRUGS (1)
  1. VICTOZA [Suspect]
     Active Substance: LIRAGLUTIDE
     Indication: Diabetes mellitus
     Route: 058

REACTIONS (7)
  - Renal cancer [Unknown]
  - Headache [Not Recovered/Not Resolved]
  - Injection site swelling [Unknown]
  - Nervousness [Not Recovered/Not Resolved]
  - Tremor [Unknown]
  - Blood disorder [Unknown]
  - Circumstance or information capable of leading to medication error [Unknown]
